FAERS Safety Report 8582981-8 (Version None)
Quarter: 2012Q3

REPORT INFORMATION
  Report Type: 
  Country: None (occurrence: None)
  Receive Date: 20120809
  Receipt Date: 20120803
  Transmission Date: 20120928
  Serious: No
  Sender: FDA-Public Use
  Company Number: JP-PFIZER INC-2012177900

PATIENT
  Age: 68 Year
  Sex: Female

DRUGS (2)
  1. CICLOSPORIN [Concomitant]
     Indication: INTERSTITIAL LUNG DISEASE
     Dosage: 150 MG/DAY
  2. REVATIO [Suspect]
     Dosage: 60 MG/DAY
     Route: 048

REACTIONS (1)
  - NO ADVERSE EVENT [None]
